FAERS Safety Report 5196884-2 (Version None)
Quarter: 2006Q4

REPORT INFORMATION
  Report Type: 
  Country: None (occurrence: None)
  Receive Date: 20061227
  Receipt Date: 20061214
  Transmission Date: 20070319
  Serious: Yes (Death, Life-Threatening)
  Sender: FDA-Public Use
  Company Number: 2006SP008512

PATIENT
  Age: 89 Year
  Sex: Female

DRUGS (10)
  1. EPTIFIBATIDE (S-P) (EPTIFIBATIDE) [Suspect]
     Indication: CORONARY ARTERY DISEASE
     Dosage: IV
     Route: 042
     Dates: start: 20061123, end: 20061123
  2. LIGNOCAINE HYDROCHLORIDE (LIDOCAINE HYDROCHLORIDE) [Suspect]
     Indication: ANAESTHESIA
     Dosage: SC
     Route: 058
     Dates: start: 20061123, end: 20061123
  3. HEXABRIX [Suspect]
     Indication: ARTERIOGRAM CORONARY
     Dosage: IV
     Route: 042
     Dates: start: 20061123, end: 20061123
  4. ISOSORBIDE DINITRATE (CON). [Concomitant]
  5. ENOXAPARIN (CON.) [Concomitant]
  6. ENALAPRIL (CON.) [Concomitant]
  7. ALLOPURINOL (CON.) [Concomitant]
  8. ASPIRIN (CON.) [Concomitant]
  9. CARVEDILOL (CON.) [Concomitant]
  10. RETEPLASE (CON.) [Concomitant]

REACTIONS (6)
  - CARDIAC PROCEDURE COMPLICATION [None]
  - FEELING HOT [None]
  - LOSS OF CONSCIOUSNESS [None]
  - MYOCARDIAL RUPTURE [None]
  - OXYGEN SATURATION DECREASED [None]
  - SHOCK [None]
